FAERS Safety Report 6945666-7 (Version None)
Quarter: 2010Q3

REPORT INFORMATION
  Report Type: 
  Country: None (occurrence: None)
  Receive Date: 20100827
  Receipt Date: 20100819
  Transmission Date: 20110219
  Serious: Yes (Life-Threatening)
  Sender: FDA-Public Use
  Company Number: GXKR2010NO09281

PATIENT
  Sex: Female

DRUGS (4)
  1. VENLAFAXINE HCL [Suspect]
     Indication: DEPRESSION
     Dosage: 300 MG, QD
     Route: 048
     Dates: start: 20080807
  2. VENLAFAXINE HCL [Suspect]
     Indication: ANXIETY
  3. VALLERGAN [Concomitant]
     Indication: INSOMNIA
     Dosage: EVENING
     Route: 048
  4. TRANDATE [Concomitant]
     Indication: PRE-ECLAMPSIA
     Route: 048
     Dates: start: 20100512

REACTIONS (2)
  - DRUG EXPOSURE DURING PREGNANCY [None]
  - PRE-ECLAMPSIA [None]
